FAERS Safety Report 4365733-4 (Version None)
Quarter: 2004Q2

REPORT INFORMATION
  Report Type: 
  Country: None (occurrence: None)
  Receive Date: 20040526
  Receipt Date: 20040526
  Transmission Date: 20050107
  Serious: Yes (Other)
  Sender: FDA-Public Use
  Company Number: None

PATIENT
  Age: 43 Year
  Sex: Male

DRUGS (3)
  1. LANSOPRAZOLE [Suspect]
     Indication: GASTROOESOPHAGEAL REFLUX DISEASE
     Dosage: 60 MG BID PO
     Route: 048
     Dates: start: 20030530, end: 20040322
  2. SILDENAFIL [Concomitant]
  3. HYDROXYZINE [Concomitant]

REACTIONS (1)
  - HALLUCINATION [None]
